FAERS Safety Report 6525515-1 (Version None)
Quarter: 2010Q1

REPORT INFORMATION
  Report Type: 
  Country: None (occurrence: None)
  Receive Date: 20100104
  Receipt Date: 20091218
  Transmission Date: 20100710
  Serious: No
  Sender: FDA-Public Use
  Company Number: US-B.I. PHARMACEUTICALS,INC./RIDGEFIELD-2009-BP-14576BP

PATIENT
  Age: 77 Year
  Sex: Male

DRUGS (2)
  1. FLOMAX [Suspect]
     Indication: PROSTATOMEGALY
     Dosage: 0.4 MG
     Route: 048
     Dates: start: 20091101
  2. FLOMAX [Suspect]
     Indication: DYSURIA

REACTIONS (1)
  - URINARY HESITATION [None]
